FAERS Safety Report 5259268-4 (Version None)
Quarter: 2007Q1

REPORT INFORMATION
  Report Type: 
  Country: None (occurrence: None)
  Receive Date: 20070308
  Receipt Date: 20061025
  Transmission Date: 20070707
  Serious: Yes (Hospitalization)
  Sender: FDA-Public Use
  Company Number: GB-BOEHRINGER INGELHEIM GMBH, GERMANY-2006-UK-04391UK

PATIENT
  Age: 69 Year
  Sex: Female

DRUGS (6)
  1. ASASANTIN RETARD (00015/0224) [Suspect]
     Indication: CEREBROVASCULAR ACCIDENT
     Dosage: 75MG ASPRIN, 400MG DIPYRIDAMOLE
     Route: 048
     Dates: end: 20060529
  2. BENDROFLUMETHIAZIDE [Concomitant]
     Indication: HYPERTENSION
     Route: 048
  3. HUMULIN M3 [Concomitant]
     Indication: DIABETES MELLITUS
     Route: 058
  4. PERINDOPRIL ERBUMINE [Concomitant]
     Indication: HYPERTENSION
  5. QUININE [Concomitant]
     Indication: MUSCLE SPASMS
     Route: 048
  6. SIMVASTATIN [Concomitant]
     Indication: BLOOD CHOLESTEROL INCREASED
     Route: 048

REACTIONS (7)
  - ASTHENIA [None]
  - BLOOD UREA INCREASED [None]
  - DIZZINESS [None]
  - GASTRIC ULCER [None]
  - HAEMOGLOBIN DECREASED [None]
  - LETHARGY [None]
  - VOMITING [None]
